FAERS Safety Report 26103763 (Version 2)
Quarter: 2025Q4

REPORT INFORMATION
  Report Type: Spontaneous
  Country: US (occurrence: US)
  Receive Date: 20251129
  Receipt Date: 20251204
  Transmission Date: 20260117
  Serious: No
  Sender: UNITED THERAPEUTICS
  Company Number: US-UNITED THERAPEUTICS-UNT-2025-040087

PATIENT
  Age: 6 Year
  Sex: Male

DRUGS (13)
  1. UNITUXIN [Suspect]
     Active Substance: DINUTUXIMAB
     Indication: Neuroblastoma
     Dosage: UNK, CYCLICAL (CYCLE 1 TO CYCLE 6 FOR FIRST RELAPSE)
     Route: 041
  2. UNITUXIN [Suspect]
     Active Substance: DINUTUXIMAB
     Dosage: UNK, CYCLICAL (CYCLE 1 TO CYCLE 10 FOR SECOND RELAPSE)
     Route: 041
  3. UNITUXIN [Suspect]
     Active Substance: DINUTUXIMAB
     Dosage: UNK, CYCLICAL (THIRD RELAPSE)
     Route: 041
  4. TEMOZOLOMIDE [Suspect]
     Active Substance: TEMOZOLOMIDE
     Indication: Neuroblastoma
     Dosage: UNK, CYCLICAL (CYCLE 1 TO CYCLE 6 FOR FIRST RELAPSE)
  5. TEMOZOLOMIDE [Suspect]
     Active Substance: TEMOZOLOMIDE
     Dosage: UNK, CYCLICAL (CYCLE 1 TO CYCLE 10 FOR SECOND RELAPSE)
  6. TEMOZOLOMIDE [Suspect]
     Active Substance: TEMOZOLOMIDE
     Dosage: UNK, CYCLICAL (CYCLE 1 AND CYCLE 2 FOR THIRD RELAPSE)
  7. TEMOZOLOMIDE [Suspect]
     Active Substance: TEMOZOLOMIDE
     Dosage: UNK, CYCLICAL (RESTARTED FOR THIRD RELAPSE)
  8. CYCLOPHOSPHAMIDE [Suspect]
     Active Substance: CYCLOPHOSPHAMIDE
     Indication: Neuroblastoma
     Dosage: UNK, CYCLICAL (CYCLE 1 AND 2 FOR THIRD RELAPSE)
  9. TOPOTECAN [Suspect]
     Active Substance: TOPOTECAN HYDROCHLORIDE
     Indication: Neuroblastoma
     Dosage: UNK, CYCLICAL (CYCLE 1 AND 2 FOR THIRD RELAPSE)
  10. IRINOTECAN [Concomitant]
     Active Substance: IRINOTECAN
     Indication: Neuroblastoma
     Dosage: UNK, CYCLICAL (CYCLE 1 TO CYCLE 6 FOR FIRST RELAPSE)
  11. IRINOTECAN [Concomitant]
     Active Substance: IRINOTECAN
     Dosage: UNK, CYCLICAL (CYCLE 1 TO CYCLE 10 FOR SECOND RELAPSE)
  12. IRINOTECAN [Concomitant]
     Active Substance: IRINOTECAN
     Dosage: UNK, CYCLICAL (THIRD RELAPSE)
  13. EFLORNITHINE [Concomitant]
     Active Substance: EFLORNITHINE
     Indication: Neuroblastoma

REACTIONS (6)
  - Ventricular extrasystoles [Unknown]
  - Supraventricular extrasystoles [Unknown]
  - Nausea [Unknown]
  - Vomiting [Unknown]
  - Full blood count decreased [Unknown]
  - Therapy non-responder [Unknown]

NARRATIVE: CASE EVENT DATE: 20250101
